FAERS Safety Report 6286263-9 (Version None)
Quarter: 2009Q3

REPORT INFORMATION
  Report Type: 
  Country: None (occurrence: None)
  Receive Date: 20090728
  Receipt Date: 20090715
  Transmission Date: 20100115
  Serious: Yes (Hospitalization)
  Sender: FDA-Public Use
  Company Number: US-PFIZER INC-2009218604

PATIENT
  Sex: Female

DRUGS (8)
  1. XANAX [Suspect]
     Indication: ANXIETY
     Dosage: 5 MG, AS NEEDED
     Route: 048
  2. REBIF [Suspect]
     Indication: MULTIPLE SCLEROSIS
     Dosage: 44 MCG 3 TIMES A WEEK
     Route: 058
     Dates: start: 20080917
  3. AMBIEN [Suspect]
     Indication: INSOMNIA
     Dosage: 10 MG, 1X/DAY
  4. FUROSEMIDE [Concomitant]
     Indication: HYPERTENSION
     Dosage: 20 MG, 1X/DAY
  5. SYNTHROID [Concomitant]
     Indication: HYPOTHYROIDISM
     Dosage: 0.112 MG, UNK
  6. SYNTHROID [Concomitant]
     Indication: AUTOIMMUNE THYROIDITIS
  7. VYTORIN [Concomitant]
     Indication: BLOOD CHOLESTEROL INCREASED
     Dosage: UNK
  8. TRICOR [Concomitant]
     Indication: BLOOD TRIGLYCERIDES INCREASED
     Dosage: 145 MG, UNK

REACTIONS (6)
  - AMNESIA [None]
  - DEPRESSION [None]
  - EMOTIONAL DISORDER [None]
  - LOSS OF CONSCIOUSNESS [None]
  - MOOD ALTERED [None]
  - OVERDOSE [None]
